FAERS Safety Report 9331584 (Version 1)
Quarter: 2013Q2

REPORT INFORMATION
  Report Type: Spontaneous
  Country: JP (occurrence: None)
  Receive Date: 20130531
  Receipt Date: 20130531
  Transmission Date: 20140414
  Serious: Yes (Death)
  Sender: FDA-Public Use
  Company Number: JP-20130043

PATIENT
  Age: 75 Year
  Sex: Male

DRUGS (4)
  1. LIPIODOL ULTRA FLUID [Suspect]
     Indication: THERAPEUTIC EMBOLISATION
     Route: 013
  2. CISPLATIN [Suspect]
     Indication: THERAPEUTIC EMBOLISATION
     Route: 013
  3. GEL PART (GELATIN) (GELATIN) [Concomitant]
  4. NEXAVAR (SORAFENIB) (SORAFENIB) [Concomitant]

REACTIONS (3)
  - Liver abscess [None]
  - Escherichia infection [None]
  - Off label use [None]
